FAERS Safety Report 10243676 (Version 1)
Quarter: 2014Q2

REPORT INFORMATION
  Report Type: Spontaneous
  Country: US (occurrence: None)
  Receive Date: 20140616
  Receipt Date: 20140616
  Transmission Date: 20141212
  Serious: Yes (Hospitalization)
  Sender: FDA-Public Use
  Company Number: UNT-2014-000589

PATIENT
  Age: 30 Year
  Sex: Female
  Weight: 122.4 kg

DRUGS (4)
  1. REMODULIN (TREPROSTINIL SODIUM) INJECTION, 5MG/ML [Suspect]
     Indication: PULMONARY ARTERIAL HYPERTENSION
     Dosage: CONTINUING
     Route: 058
     Dates: start: 20050406
  2. ADCIRCA (TADALAFIL) [Concomitant]
  3. TRACLEER (BOSENTAN) [Concomitant]
  4. COUMADIN (WARFARIN SODIUM) [Concomitant]

REACTIONS (2)
  - Pneumonia [None]
  - Respiratory failure [None]
